FAERS Safety Report 4293691-X (Version None)
Quarter: 2004Q1

REPORT INFORMATION
  Report Type: 
  Country: None (occurrence: None)
  Receive Date: 20040212
  Receipt Date: 20020823
  Transmission Date: 20041129
  Serious: Yes (Hospitalization)
  Sender: FDA-Public Use
  Company Number: PL-ROCHE-320276

PATIENT
  Age: 22 Year
  Sex: Male
  Weight: 68.2 kg

DRUGS (31)
  1. DACLIZUMAB [Suspect]
     Route: 042
     Dates: start: 20020725, end: 20020725
  2. DACLIZUMAB [Suspect]
     Dosage: 4 DOSES
     Route: 042
     Dates: start: 20020808, end: 20020905
  3. MYCOPHENOLATE MOFETIL [Suspect]
     Route: 048
     Dates: start: 20020725
  4. MYCOPHENOLATE MOFETIL [Suspect]
     Route: 048
     Dates: start: 20020809, end: 20020822
  5. MYCOPHENOLATE MOFETIL [Suspect]
     Route: 048
     Dates: start: 20020823, end: 20020823
  6. MYCOPHENOLATE MOFETIL [Suspect]
     Route: 048
     Dates: start: 20020824, end: 20020824
  7. MYCOPHENOLATE MOFETIL [Suspect]
     Route: 048
     Dates: start: 20020825, end: 20020829
  8. MYCOPHENOLATE MOFETIL [Suspect]
     Route: 048
     Dates: start: 20020830, end: 20020902
  9. MYCOPHENOLATE MOFETIL [Suspect]
     Route: 048
     Dates: start: 20020903, end: 20020903
  10. MYCOPHENOLATE MOFETIL [Suspect]
     Route: 048
     Dates: start: 20020904, end: 20020907
  11. MYCOPHENOLATE MOFETIL [Suspect]
     Route: 048
     Dates: start: 20020908, end: 20020908
  12. MYCOPHENOLATE MOFETIL [Suspect]
     Route: 048
     Dates: start: 20020909, end: 20020909
  13. MYCOPHENOLATE MOFETIL [Suspect]
     Route: 048
     Dates: start: 20020910, end: 20020910
  14. MYCOPHENOLATE MOFETIL [Suspect]
     Route: 048
     Dates: start: 20020911, end: 20020913
  15. MYCOPHENOLATE MOFETIL [Suspect]
     Route: 048
     Dates: start: 20020914, end: 20020915
  16. MYCOPHENOLATE MOFETIL [Suspect]
     Route: 048
     Dates: start: 20020916, end: 20020916
  17. MYCOPHENOLATE MOFETIL [Suspect]
     Route: 048
     Dates: start: 20020917
  18. PREDNISONE [Suspect]
     Route: 065
     Dates: start: 20020806, end: 20020917
  19. FUROSEMIDE [Concomitant]
     Dates: start: 20020806, end: 20020910
  20. AMLODIPINE [Concomitant]
     Dates: start: 20020806
  21. METOPROLOL [Concomitant]
     Dosage: 150 MG DAILY:  22 AUG 2002 75 MG DAILY: 14-21 AUG 2002 50 MG DAILY:  09-13 AUG 2002
     Dates: start: 20020809
  22. ENOXAPARINE [Concomitant]
     Dosage: STARTED 40 MG DAILY ON 22 AUG 2002
     Dates: start: 20020809, end: 20020918
  23. AUGMENTIN '125' [Concomitant]
     Dates: start: 20020821, end: 20020827
  24. COTRIMOXAZOLE [Concomitant]
     Dates: start: 20020805
  25. RANITIDINE [Concomitant]
     Dates: start: 20020805
  26. ACYCLOVIR [Concomitant]
     Dates: start: 20020805
  27. NYSTATINE [Concomitant]
     Dates: start: 20020805
  28. PREDNISONE [Concomitant]
     Dates: start: 20020918
  29. RAPAMUNE [Concomitant]
     Dates: start: 20020912
  30. BISEPTOL [Concomitant]
     Dates: start: 20020805
  31. FK506 [Concomitant]
     Dates: start: 20020824, end: 20020911

REACTIONS (7)
  - ALANINE AMINOTRANSFERASE INCREASED [None]
  - ASPARTATE AMINOTRANSFERASE INCREASED [None]
  - BLOOD CREATININE INCREASED [None]
  - CYTOMEGALOVIRUS INFECTION [None]
  - GASTRITIS [None]
  - GRAFT DYSFUNCTION [None]
  - LEUKOPENIA [None]
